FAERS Safety Report 17081273 (Version 1)
Quarter: 2019Q4

REPORT INFORMATION
  Report Type: Spontaneous
  Country: US (occurrence: US)
  Receive Date: 20191126
  Receipt Date: 20191126
  Transmission Date: 20200122
  Serious: Yes (Death)
  Sender: FDA-Public Use
  Company Number: None

PATIENT
  Age: 85 Year
  Sex: Female

DRUGS (15)
  1. PREDNISONE TAB 20 MG [Concomitant]
  2. CEREFOLIN TAB [Concomitant]
  3. CARTIA XT CAP 120/24 HR [Concomitant]
  4. METHYLPRED TAB 4 MG [Concomitant]
  5. CARVEDILOL TAB 6.25 MG [Concomitant]
  6. METAFOLBIC TAB [Concomitant]
  7. LEVOTHYROXINE TAB 50 MCG [Concomitant]
  8. ATORVASTATIN TAB 20 MG [Concomitant]
  9. DICLOFENAC GEL 1% [Concomitant]
     Active Substance: DICLOFENAC
  10. OMEPRAZOLE CAP 20 MG [Concomitant]
  11. FOLIC ACID TAB 1000 MCG [Concomitant]
  12. FUROSEMIDE TAB 20 MG [Concomitant]
  13. XELJANZ [Suspect]
     Active Substance: TOFACITINIB CITRATE
     Indication: RHEUMATOID ARTHRITIS
     Route: 048
     Dates: start: 20180117, end: 20191118
  14. LISINOPRIL TAB 10 MG [Concomitant]
  15. APAP/CODEINE TAB 300-30 MG [Concomitant]

REACTIONS (1)
  - Death [None]
